FAERS Safety Report 4805948-1 (Version None)
Quarter: 2005Q4

REPORT INFORMATION
  Report Type: 
  Country: None (occurrence: None)
  Receive Date: 20051021
  Receipt Date: 20051017
  Transmission Date: 20060501
  Serious: Yes (Death)
  Sender: FDA-Public Use
  Company Number: 2005GB02027

PATIENT
  Age: 83 Year
  Sex: Male

DRUGS (9)
  1. ATENOLOL [Suspect]
     Indication: HYPERTENSION
     Route: 048
     Dates: end: 20040601
  2. VENLAFAXINE HCL [Suspect]
     Indication: DEPRESSION
     Route: 048
     Dates: start: 20031101, end: 20031201
  3. VENLAFAXINE HCL [Suspect]
     Route: 048
     Dates: start: 20031201
  4. ASPIRIN [Concomitant]
     Route: 048
  5. BENDROFLUAZIDE [Concomitant]
     Indication: HYPERTENSION
     Route: 048
     Dates: start: 20040713
  6. LATANOPROST [Concomitant]
     Indication: GLAUCOMA
     Route: 047
  7. SENNA [Concomitant]
     Indication: CONSTIPATION
     Dosage: ONE OR TWO 7.5MG DOSE
     Route: 048
     Dates: start: 20040204
  8. TIMOLOL MALEATE [Concomitant]
     Indication: GLAUCOMA
     Route: 047
  9. ZOLPIDEM TARTRATE [Concomitant]
     Indication: INSOMNIA
     Route: 048
     Dates: start: 20040204

REACTIONS (4)
  - CARDIAC FAILURE [None]
  - GENERAL PHYSICAL HEALTH DETERIORATION [None]
  - OEDEMA PERIPHERAL [None]
  - TACHYCARDIA [None]
